FAERS Safety Report 11218140 (Version 3)
Quarter: 2015Q4

REPORT INFORMATION
  Report Type: Spontaneous
  Country: US (occurrence: US)
  Receive Date: 20150625
  Receipt Date: 20151203
  Transmission Date: 20160304
  Serious: No
  Sender: FDA-Public Use
  Company Number: US-BIOGENIDEC-2015BI086811

PATIENT
  Age: 62 Year
  Sex: Male

DRUGS (10)
  1. AMPYRA [Concomitant]
     Active Substance: DALFAMPRIDINE
     Indication: MULTIPLE SCLEROSIS
     Route: 048
  2. GABAPENTIN (GABAPENTIN) [Concomitant]
     Active Substance: GABAPENTIN
  3. TECFIDERA [Suspect]
     Active Substance: DIMETHYL FUMARATE
     Indication: PRODUCT USED FOR UNKNOWN INDICATION
     Dates: start: 20150601
  4. XANAX [Concomitant]
     Active Substance: ALPRAZOLAM
  5. OXYCODONE W/PARACETAMOL (OXYCODONE W/PARACETAMOL) [Concomitant]
  6. WELLBUTRIN [Concomitant]
     Active Substance: BUPROPION HYDROCHLORIDE
  7. SIMVASTATIN (SIMVASTATIN) [Concomitant]
     Active Substance: SIMVASTATIN
  8. IBUPROFEN (IBUPROFEN) [Concomitant]
     Active Substance: IBUPROFEN
  9. PROZAC [Concomitant]
     Active Substance: FLUOXETINE HYDROCHLORIDE
  10. TIZANIDINE. [Concomitant]
     Active Substance: TIZANIDINE

REACTIONS (4)
  - Vision blurred [Recovered/Resolved]
  - Dizziness [Recovered/Resolved]
  - Nausea [Recovered/Resolved]
  - Headache [Recovered/Resolved]

NARRATIVE: CASE EVENT DATE: 20150601
